FAERS Safety Report 5205863-8 (Version None)
Quarter: 2007Q1

REPORT INFORMATION
  Report Type: 
  Country: None (occurrence: None)
  Receive Date: 20070111
  Receipt Date: 20070104
  Transmission Date: 20070707
  Serious: Yes (Hospitalization)
  Sender: FDA-Public Use
  Company Number: US-AVENTIS-200616677GDDC

PATIENT
  Age: 56 Year
  Sex: Male
  Weight: 69.1 kg

DRUGS (4)
  1. LANTUS [Suspect]
     Indication: DIABETES MELLITUS INSULIN-DEPENDENT
     Route: 058
     Dates: start: 20021219
  2. NOVOLOG [Suspect]
     Indication: DIABETES MELLITUS INSULIN-DEPENDENT
     Dosage: DOSE: BREAKFAST 3-8 U/LUNCH 14 +U/DINNER 13 +U  (4 IN 1 D)
     Route: 058
     Dates: start: 20021219
  3. VALSARTAN [Concomitant]
     Route: 048
     Dates: start: 20020123
  4. ASCORBIC ACID [Concomitant]
     Route: 048
     Dates: start: 20020901

REACTIONS (2)
  - HYPOGLYCAEMIA [None]
  - MENTAL STATUS CHANGES [None]
